FAERS Safety Report 6227731-5 (Version None)
Quarter: 2009Q2

REPORT INFORMATION
  Report Type: 
  Country: None (occurrence: None)
  Receive Date: 20090612
  Receipt Date: 20090609
  Transmission Date: 20091009
  Serious: Yes (Death)
  Sender: FDA-Public Use
  Company Number: CH-ROCHE-637444

PATIENT
  Age: 63 Year
  Sex: Female

DRUGS (4)
  1. CAPECITABINE [Suspect]
     Indication: BREAST CANCER
     Route: 065
  2. TRASTUZUMAB [Suspect]
     Indication: BREAST CANCER
     Dosage: SECOND LINE: 24/NOV/07 AND THIRDLINE: 22/MAY/07
     Route: 065
     Dates: start: 20060710
  3. NAVELBINE [Suspect]
     Indication: BREAST CANCER
     Route: 065
  4. LAPATINIB [Suspect]
     Indication: BREAST CANCER
     Route: 048

REACTIONS (1)
  - MALIGNANT NEOPLASM PROGRESSION [None]
